FAERS Safety Report 8480183-7 (Version None)
Quarter: 2012Q2

REPORT INFORMATION
  Report Type: 
  Country: None (occurrence: None)
  Receive Date: 20120629
  Receipt Date: 20120622
  Transmission Date: 20120825
  Serious: Yes (Hospitalization, Other)
  Sender: FDA-Public Use
  Company Number: US-MERCK-1110USA04123

PATIENT
  Age: 72 Year
  Sex: Female

DRUGS (6)
  1. CALCIUM (UNSPECIFIED) [Concomitant]
     Indication: OSTEOPOROSIS
     Route: 065
     Dates: start: 20000101
  2. FOSAMAX [Suspect]
     Indication: OSTEOPOROSIS
     Route: 048
     Dates: start: 19970101, end: 20011001
  3. VITAMIN D (UNSPECIFIED) [Concomitant]
     Indication: OSTEOPOROSIS
     Route: 065
     Dates: start: 20000101
  4. FOSAMAX [Suspect]
     Route: 048
     Dates: start: 20010101, end: 20080301
  5. FOSAMAX [Suspect]
     Route: 048
     Dates: start: 20080101, end: 20100401
  6. CHOLECALCIFEROL [Concomitant]
     Indication: OSTEOPOROSIS
     Route: 065
     Dates: start: 20000101

REACTIONS (5)
  - ADVERSE EVENT [None]
  - LOW TURNOVER OSTEOPATHY [None]
  - ESCHERICHIA TEST POSITIVE [None]
  - VITAMIN D DEFICIENCY [None]
  - FEMUR FRACTURE [None]
